FAERS Safety Report 5814657-1 (Version None)
Quarter: 2008Q3

REPORT INFORMATION
  Report Type: 
  Country: None (occurrence: None)
  Receive Date: 20080718
  Receipt Date: 20070904
  Transmission Date: 20090109
  Serious: No
  Sender: FDA-Public Use
  Company Number: US-KINGPHARMUSA00001-K200701142

PATIENT

DRUGS (2)
  1. LEVOXYL [Suspect]
     Indication: AUTOIMMUNE THYROIDITIS
     Dates: start: 19970101
  2. CIPRO  /00697201/ [Suspect]
     Indication: CYSTITIS

REACTIONS (3)
  - CYSTITIS [None]
  - DIARRHOEA [None]
  - FEELING ABNORMAL [None]
